FAERS Safety Report 11966133 (Version 5)
Quarter: 2016Q2

REPORT INFORMATION
  Report Type: Spontaneous
  Country: US (occurrence: US)
  Receive Date: 20160127
  Receipt Date: 20160412
  Transmission Date: 20160815
  Serious: Yes (Other)
  Sender: FDA-Public Use
  Company Number: US-PFIZER INC-2015422157

PATIENT
  Age: 83 Year
  Sex: Female

DRUGS (4)
  1. IBRANCE [Suspect]
     Active Substance: PALBOCICLIB
     Indication: BREAST CANCER METASTATIC
     Dosage: 125 MG, CYCLIC (1 CAPSULE BY MOUTH DAILY 3 WEEKS ON WITH 1 WEEK OFF)
     Route: 048
     Dates: start: 20151127
  2. IBRANCE [Suspect]
     Active Substance: PALBOCICLIB
     Dosage: 100 MG, CYCLIC (WITH FOOD FOR 3 WEEKS ON FOLLOWED BY 1 WEEK OFF)
     Route: 048
     Dates: start: 20160218
  3. AROMASIN [Concomitant]
     Active Substance: EXEMESTANE
     Dosage: 25 MG, DAILY (AFTER MEAL)
     Route: 048
     Dates: start: 20150305
  4. IBRANCE [Suspect]
     Active Substance: PALBOCICLIB
     Dosage: 125 MG, DAILY
     Dates: start: 20150326

REACTIONS (10)
  - Blood count abnormal [Unknown]
  - Hot flush [Unknown]
  - White blood cell count decreased [Unknown]
  - Major depression [Unknown]
  - Insomnia [Unknown]
  - Fatigue [Unknown]
  - Asthenia [Unknown]
  - Neutropenia [Unknown]
  - Diarrhoea [Unknown]
  - Increased appetite [Unknown]

NARRATIVE: CASE EVENT DATE: 20150326
